FAERS Safety Report 16130426 (Version 1)
Quarter: 2019Q1

REPORT INFORMATION
  Report Type: Spontaneous
  Country: US (occurrence: US)
  Receive Date: 20190328
  Receipt Date: 20190328
  Transmission Date: 20190418
  Serious: No
  Sender: FDA-Public Use
  Company Number: US-INDIVIOR LIMITED-INDV-117552-2019

PATIENT
  Age: 34 Year
  Sex: Male

DRUGS (1)
  1. SUBLOCADE [Suspect]
     Active Substance: BUPRENORPHINE
     Indication: DRUG USE DISORDER
     Dosage: 300 MILLIGRAM, QMO (1 INJECTION)
     Route: 065
     Dates: start: 201901

REACTIONS (4)
  - Feeling abnormal [Unknown]
  - Nervousness [Unknown]
  - Drug dependence [Unknown]
  - Anxiety [Unknown]

NARRATIVE: CASE EVENT DATE: 201901
